FAERS Safety Report 5426925-6 (Version None)
Quarter: 2007Q3

REPORT INFORMATION
  Report Type: 
  Country: None (occurrence: None)
  Receive Date: 20070827
  Receipt Date: 20070817
  Transmission Date: 20080115
  Serious: Yes (Other)
  Sender: FDA-Public Use
  Company Number: AU-ABBOTT-07P-008-0378334-00

PATIENT
  Age: 54 Year
  Sex: Male

DRUGS (2)
  1. LIPIDIL [Suspect]
     Indication: BLOOD TRIGLYCERIDES INCREASED
     Route: 048
  2. ATORVASTATIN CALCIUM [Concomitant]
     Indication: DRUG USE FOR UNKNOWN INDICATION
     Route: 048

REACTIONS (2)
  - BLOOD TRIGLYCERIDES ABNORMAL [None]
  - LIVER DISORDER [None]
